FAERS Safety Report 10439942 (Version 1)
Quarter: 2014Q3

REPORT INFORMATION
  Report Type: Spontaneous
  Country: US (occurrence: US)
  Receive Date: 20140908
  Receipt Date: 20140908
  Transmission Date: 20150326
  Serious: No
  Sender: FDA-Public Use
  Company Number: US-BRISTOL-MYERS SQUIBB COMPANY-19389816

PATIENT
  Age: 13 Year
  Sex: Male

DRUGS (5)
  1. PROZAC [Suspect]
     Active Substance: FLUOXETINE HYDROCHLORIDE
  2. ABILIFY [Suspect]
     Active Substance: ARIPIPRAZOLE
     Indication: ASPERGER^S DISORDER
  3. STRATTERA [Suspect]
     Active Substance: ATOMOXETINE HYDROCHLORIDE
  4. TRILEPTAL [Suspect]
     Active Substance: OXCARBAZEPINE
  5. KLONOPIN [Suspect]
     Active Substance: CLONAZEPAM

REACTIONS (2)
  - Weight decreased [Unknown]
  - Off label use [Unknown]
